FAERS Safety Report 4555523-1 (Version None)
Quarter: 2005Q1

REPORT INFORMATION
  Report Type: 
  Country: None (occurrence: None)
  Receive Date: 20050118
  Receipt Date: 20050118
  Transmission Date: 20050727
  Serious: No
  Sender: FDA-Public Use
  Company Number: None

PATIENT
  Age: 8 Year
  Sex: Male
  Weight: 24.0406 kg

DRUGS (1)
  1. IMIPRAM TAB [Suspect]
     Indication: ATTENTION DEFICIT/HYPERACTIVITY DISORDER
     Dosage: 25 MG BID
     Dates: start: 20041101, end: 20050101

REACTIONS (3)
  - ANGER [None]
  - DRUG INEFFECTIVE [None]
  - VOMITING [None]
